FAERS Safety Report 10559460 (Version 1)
Quarter: 2014Q4

REPORT INFORMATION
  Report Type: Spontaneous
  Country: US (occurrence: None)
  Receive Date: 20141031
  Receipt Date: 20141031
  Transmission Date: 20150529
  Serious: Yes (Disabling)
  Sender: FDA-Public Use
  Company Number: None

PATIENT
  Age: 43 Year
  Sex: Female
  Weight: 63.5 kg

DRUGS (1)
  1. ATIVAN [Suspect]
     Active Substance: LORAZEPAM
     Indication: ANXIETY
     Dosage: 45 TABLETS PER MONTH
     Route: 048

REACTIONS (16)
  - Photosensitivity reaction [None]
  - Disturbance in attention [None]
  - Headache [None]
  - Tremor [None]
  - Fatigue [None]
  - Drug withdrawal syndrome [None]
  - Tinnitus [None]
  - Irritability [None]
  - Nausea [None]
  - Drug tolerance [None]
  - Dizziness [None]
  - Anger [None]
  - Amnesia [None]
  - Drug dependence [None]
  - Hyperhidrosis [None]
  - Depersonalisation [None]

NARRATIVE: CASE EVENT DATE: 20141030
